FAERS Safety Report 7805800 (Version 4)
Quarter: 2013Q3

REPORT INFORMATION
  Report Type: Report from Study
  Country: IL (occurrence: IL)
  Receive Date: 20110209
  Receipt Date: 20130712
  Transmission Date: 20140515
  Serious: Yes (Hospitalization)
  Sender: FDA-Public Use
  Company Number: IL-BRISTOL-MYERS SQUIBB COMPANY-15510670

PATIENT
  Age: 63 Year
  Sex: Male

DRUGS (6)
  1. SAXAGLIPTIN [Suspect]
     Indication: TYPE 2 DIABETES MELLITUS
     Dosage: WITHDREW CONSENT?LAST DOSE:20JAN2011
     Dates: start: 20101124
  2. GLUCOPHAGE [Suspect]
     Indication: TYPE 2 DIABETES MELLITUS
  3. APIDRA [Suspect]
     Indication: TYPE 2 DIABETES MELLITUS
  4. LANTUS [Suspect]
     Indication: TYPE 2 DIABETES MELLITUS
  5. ASPIRIN [Concomitant]
     Dosage: 1 DF={100MG
     Dates: start: 20101124
  6. ANGIOTENSIN CONVERTING ENZYME [Concomitant]
     Dates: start: 20101124

REACTIONS (2)
  - Pneumonia [Recovered/Resolved]
  - Supraventricular tachycardia [Unknown]
